FAERS Safety Report 25582824 (Version 1)
Quarter: 2025Q3

REPORT INFORMATION
  Report Type: Spontaneous
  Country: CN (occurrence: CN)
  Receive Date: 20250720
  Receipt Date: 20250720
  Transmission Date: 20251020
  Serious: Yes (Hospitalization, Other)
  Sender: BEIGENE
  Company Number: CN-BEIGENE-BGN-2025-011443

PATIENT
  Age: 65 Year
  Weight: 55.5 kg

DRUGS (8)
  1. TISLELIZUMAB [Suspect]
     Active Substance: TISLELIZUMAB
     Indication: Lung neoplasm malignant
  2. TISLELIZUMAB [Suspect]
     Active Substance: TISLELIZUMAB
     Route: 041
  3. TISLELIZUMAB [Suspect]
     Active Substance: TISLELIZUMAB
     Route: 041
  4. TISLELIZUMAB [Suspect]
     Active Substance: TISLELIZUMAB
  5. SINTILIMAB [Suspect]
     Active Substance: SINTILIMAB
     Indication: Lung neoplasm malignant
  6. SINTILIMAB [Suspect]
     Active Substance: SINTILIMAB
     Route: 041
  7. SINTILIMAB [Suspect]
     Active Substance: SINTILIMAB
     Route: 041
  8. SINTILIMAB [Suspect]
     Active Substance: SINTILIMAB

REACTIONS (3)
  - Immune-mediated hepatitis [Unknown]
  - Hepatic necrosis [Unknown]
  - Hepatic function abnormal [Recovering/Resolving]
